FAERS Safety Report 18710251 (Version 3)
Quarter: 2021Q1

REPORT INFORMATION
  Report Type: Report from Study
  Country: CA (occurrence: CA)
  Receive Date: 20210107
  Receipt Date: 20210218
  Transmission Date: 20210419
  Serious: Yes (Other)
  Sender: FDA-Public Use
  Company Number: CA-JNJFOC-20201035617

PATIENT
  Age: 53 Year
  Sex: Female
  Weight: 50 kg

DRUGS (4)
  1. REMICADE [Suspect]
     Active Substance: INFLIXIMAB
     Route: 042
  2. REMICADE [Suspect]
     Active Substance: INFLIXIMAB
     Route: 042
     Dates: end: 20210128
  3. REMICADE [Suspect]
     Active Substance: INFLIXIMAB
     Indication: CROHN^S DISEASE
     Route: 042
     Dates: start: 20110526, end: 2020
  4. REMICADE [Suspect]
     Active Substance: INFLIXIMAB
     Dosage: MD ASKING TO MOVE TREATMENTS CLOSER TOGETHER AT Q 4 WEEKS
     Route: 042

REACTIONS (4)
  - Drug specific antibody present [Unknown]
  - Colectomy [Unknown]
  - Defaecation urgency [Not Recovered/Not Resolved]
  - Post procedural diarrhoea [Not Recovered/Not Resolved]

NARRATIVE: CASE EVENT DATE: 20201021
